FAERS Safety Report 5743553-3 (Version None)
Quarter: 2008Q2

REPORT INFORMATION
  Report Type: 
  Country: None (occurrence: None)
  Receive Date: 20080519
  Receipt Date: 20080519
  Transmission Date: 20081010
  Serious: No
  Sender: FDA-Public Use
  Company Number: None

PATIENT
  Sex: Female
  Weight: 45.3597 kg

DRUGS (4)
  1. REMERON [Suspect]
     Indication: ANXIETY
     Dosage: 1 TABLET ONCE A DAY PO
     Route: 048
     Dates: start: 20041116, end: 20050430
  2. REMERON [Suspect]
     Indication: STRESS
     Dosage: 1 TABLET ONCE A DAY PO
     Route: 048
     Dates: start: 20041116, end: 20050430
  3. REMERON [Suspect]
     Indication: NAUSEA
     Dates: start: 20060121, end: 20060415
  4. REMERON [Suspect]
     Indication: WEIGHT DECREASED
     Dates: start: 20060121, end: 20060415

REACTIONS (8)
  - BALANCE DISORDER [None]
  - GAIT DISTURBANCE [None]
  - MOVEMENT DISORDER [None]
  - MUSCULAR WEAKNESS [None]
  - NAUSEA [None]
  - PARKINSON'S DISEASE [None]
  - URINARY INCONTINENCE [None]
  - WEIGHT DECREASED [None]
